FAERS Safety Report 7231951-0 (Version None)
Quarter: 2011Q1

REPORT INFORMATION
  Report Type: 
  Country: None (occurrence: None)
  Receive Date: 20110118
  Receipt Date: 20110110
  Transmission Date: 20110831
  Serious: Yes (Death)
  Sender: FDA-Public Use
  Company Number: ES-GILEAD-2011-0035072

PATIENT
  Age: 44 Year
  Sex: Female

DRUGS (4)
  1. METHYLPREDNISOLONE ACETATE [Concomitant]
     Route: 042
  2. PREDNISONE [Concomitant]
     Route: 048
  3. VIREAD [Suspect]
     Indication: HIV INFECTION
  4. EMTRIVA [Suspect]
     Indication: HIV INFECTION

REACTIONS (1)
  - IMMUNE RECONSTITUTION SYNDROME [None]
